FAERS Safety Report 5072310-9 (Version None)
Quarter: 2006Q3

REPORT INFORMATION
  Report Type: 
  Country: None (occurrence: None)
  Receive Date: 20060713
  Receipt Date: 20051219
  Transmission Date: 20061208
  Serious: Yes (Hospitalization, Other)
  Sender: FDA-Public Use
  Company Number: 2005-US-01070

PATIENT
  Age: 1 Year
  Weight: 10.6142 kg

DRUGS (1)
  1. PROGLYCEM [Suspect]
     Dosage: 50 MG/ML - 1 ML TID, ORAL
     Route: 048
     Dates: start: 20041006

REACTIONS (2)
  - CONVULSION [None]
  - DRUG INEFFECTIVE [None]
